FAERS Safety Report 9149820 (Version 1)
Quarter: 2013Q1

REPORT INFORMATION
  Report Type: Spontaneous
  Country: US (occurrence: US)
  Receive Date: 20130308
  Receipt Date: 20130308
  Transmission Date: 20140127
  Serious: No
  Sender: FDA-Public Use
  Company Number: US-B.I. PHARMACEUTICALS,INC./RIDGEFIELD-2013-BI-05536BP

PATIENT
  Sex: Female

DRUGS (6)
  1. COMBIVENT [Suspect]
     Indication: DYSPNOEA
     Route: 055
  2. COMBIVENT [Suspect]
     Route: 055
  3. COMBIVENT [Suspect]
     Indication: CHRONIC OBSTRUCTIVE PULMONARY DISEASE
     Route: 055
     Dates: start: 201301
  4. QVAR [Concomitant]
     Route: 055
  5. IPRATROPIUM BROMIDE AND ALBUTEROL SULFATE [Concomitant]
     Indication: CHRONIC OBSTRUCTIVE PULMONARY DISEASE
     Route: 055
     Dates: start: 2001
  6. SEREVENT [Concomitant]
     Route: 055

REACTIONS (4)
  - Activities of daily living impaired [Unknown]
  - Dyspnoea [Unknown]
  - Therapeutic response unexpected [Unknown]
  - Dyspnoea [Not Recovered/Not Resolved]
